FAERS Safety Report 8439316-0 (Version None)
Quarter: 2012Q2

REPORT INFORMATION
  Report Type: 
  Country: None (occurrence: None)
  Receive Date: 20120615
  Receipt Date: 20120613
  Transmission Date: 20120825
  Serious: Yes (Other)
  Sender: FDA-Public Use
  Company Number: PHEH2010US03876

PATIENT
  Sex: Male

DRUGS (55)
  1. GENTAMICIN [Concomitant]
  2. NEXIUM [Concomitant]
  3. EFFEXOR [Concomitant]
  4. SOMA [Concomitant]
  5. REGELAN [Concomitant]
  6. CLONAZEPAM [Concomitant]
  7. INDOCIN [Concomitant]
  8. CARVEDILOL [Concomitant]
  9. SENNA-MINT WAF [Concomitant]
  10. PROZAC [Concomitant]
     Dosage: 20 MG, UNK
  11. ZOMETA [Suspect]
     Indication: METASTASES TO BONE
     Dosage: 4 MG, QMO
     Dates: start: 20000530, end: 20080528
  12. TEMAZEPAM [Concomitant]
  13. BACITRACIN [Concomitant]
  14. ANTIVERT [Concomitant]
  15. ESTRADIOL [Concomitant]
     Dosage: 0.8 MG, UNK
  16. ZOCOR [Concomitant]
  17. PRILOSEC [Concomitant]
  18. MISOPROSTOL [Concomitant]
  19. HYTRIN [Concomitant]
  20. METHADON HCL TAB [Concomitant]
  21. VIVELLE [Concomitant]
  22. LORAZEPAM [Concomitant]
     Dosage: 0.5 MG, UNK
  23. ZOMETA [Suspect]
     Indication: METASTASES TO PROSTATE
  24. ZYVOX [Concomitant]
  25. OXYCODONE HCL [Concomitant]
  26. INDIGO CARMINE [Concomitant]
  27. HYZAAR [Concomitant]
  28. SENOKOT [Concomitant]
  29. CELEBREX [Concomitant]
     Dosage: 100 MG, UNK
  30. PROSCAR [Concomitant]
     Dosage: 5 MG, UNK
  31. MOTRIN [Concomitant]
     Dosage: 800 MG, UNK
  32. AREDIA [Suspect]
     Indication: METASTASES TO PROSTATE
     Dosage: 90 MG, QMO
     Route: 042
  33. PROMETHAZINE [Concomitant]
  34. KETOCONAZOLE [Concomitant]
  35. FLUNISOLIDE [Concomitant]
  36. WARFARIN SODIUM [Concomitant]
  37. CYTOTEC [Concomitant]
  38. PERCOCET [Concomitant]
  39. NEOSPORIN [Concomitant]
  40. HEPARIN [Concomitant]
  41. MARCAINE [Concomitant]
  42. HYDROCORTISONE [Concomitant]
  43. LEXAPRO [Concomitant]
  44. COUMADIN [Concomitant]
  45. ANCEF [Concomitant]
  46. KANTREX [Concomitant]
  47. VANCOMYCIN [Concomitant]
  48. METHADONE HCL [Concomitant]
  49. PEPCID [Concomitant]
  50. ALLEGRA [Concomitant]
  51. CHEMOTHERAPEUTICS [Concomitant]
  52. CYMBALTA [Concomitant]
  53. MORPHINE [Concomitant]
  54. VERSED [Concomitant]
  55. ZOFRAN [Concomitant]

REACTIONS (61)
  - CELLULITIS [None]
  - HIP FRACTURE [None]
  - AORTIC ARTERIOSCLEROSIS [None]
  - INSOMNIA [None]
  - VISUAL IMPAIRMENT [None]
  - DYSPNOEA [None]
  - TOXIC ENCEPHALOPATHY [None]
  - METABOLIC ENCEPHALOPATHY [None]
  - ORAL INFECTION [None]
  - DEFORMITY [None]
  - SWELLING [None]
  - TOOTHACHE [None]
  - CEREBROVASCULAR ACCIDENT [None]
  - OSTEOARTHRITIS [None]
  - BACK PAIN [None]
  - PNEUMONIA [None]
  - DISABILITY [None]
  - EXPOSED BONE IN JAW [None]
  - PURULENT DISCHARGE [None]
  - LOOSE TOOTH [None]
  - NEURITIS [None]
  - DIVERTICULUM [None]
  - MITRAL VALVE INCOMPETENCE [None]
  - VENTRICULAR HYPERTROPHY [None]
  - CONFUSIONAL STATE [None]
  - HYPERLIPIDAEMIA [None]
  - AGITATION [None]
  - BRACHIAL PLEXOPATHY [None]
  - ATRIAL FIBRILLATION [None]
  - PHIMOSIS [None]
  - OSTEOMYELITIS [None]
  - ERYTHEMA [None]
  - HYPERTENSION [None]
  - SPINAL CORD COMPRESSION [None]
  - TOBACCO ABUSE [None]
  - SLEEP APNOEA SYNDROME [None]
  - TRICUSPID VALVE INCOMPETENCE [None]
  - OTITIS MEDIA [None]
  - ROTATOR CUFF SYNDROME [None]
  - PAIN IN EXTREMITY [None]
  - URINARY RETENTION [None]
  - CERVICOBRACHIAL SYNDROME [None]
  - GLUCOSE TOLERANCE IMPAIRED [None]
  - AFFECTIVE DISORDER [None]
  - OSTEONECROSIS OF JAW [None]
  - PAIN [None]
  - PATHOLOGICAL FRACTURE [None]
  - DENTAL CARIES [None]
  - ARTHRALGIA [None]
  - ANXIETY [None]
  - HAEMORRHAGIC ANAEMIA [None]
  - AMNESIA [None]
  - DIZZINESS [None]
  - CATARACT [None]
  - LUMBOSACRAL PLEXUS LESION [None]
  - ANHEDONIA [None]
  - PAIN IN JAW [None]
  - NEUROPATHY PERIPHERAL [None]
  - BONE LOSS [None]
  - LUMBAR RADICULOPATHY [None]
  - GASTROOESOPHAGEAL REFLUX DISEASE [None]
